FAERS Safety Report 10297550 (Version 1)
Quarter: 2014Q3

REPORT INFORMATION
  Report Type: Spontaneous
  Country: BE (occurrence: BE)
  Receive Date: 20140711
  Receipt Date: 20140711
  Transmission Date: 20150326
  Serious: Yes (Hospitalization)
  Sender: FDA-Public Use
  Company Number: BE-009507513-1407BEL004746

PATIENT

DRUGS (1)
  1. TALOXA [Suspect]
     Active Substance: FELBAMATE
     Dosage: UNK
     Dates: start: 201407

REACTIONS (2)
  - Adverse event [Unknown]
  - Incorrect route of drug administration [Unknown]

NARRATIVE: CASE EVENT DATE: 201407
